FAERS Safety Report 10156012 (Version 1)
Quarter: 2014Q2

REPORT INFORMATION
  Report Type: Spontaneous
  Country: US (occurrence: US)
  Receive Date: 20140506
  Receipt Date: 20140506
  Transmission Date: 20141212
  Serious: Yes (Other)
  Sender: FDA-Public Use
  Company Number: US-009507513-1405USA000373

PATIENT
  Sex: Female

DRUGS (2)
  1. CLARITIN [Suspect]
     Indication: ANTIALLERGIC THERAPY
     Dosage: UNKNOWN
     Route: 048
     Dates: start: 1998, end: 2002
  2. BENADRYL [Concomitant]
     Dosage: UNKNOWN

REACTIONS (2)
  - Loss of consciousness [Unknown]
  - Drug ineffective [Recovering/Resolving]
